FAERS Safety Report 7945418-5 (Version None)
Quarter: 2011Q4

REPORT INFORMATION
  Report Type: 
  Country: None (occurrence: None)
  Receive Date: 20111129
  Receipt Date: 20111115
  Transmission Date: 20120403
  Serious: Yes (Hospitalization)
  Sender: FDA-Public Use
  Company Number: DE-AMGEN-DEUCT2011059567

PATIENT
  Age: 33 Year
  Sex: Male
  Weight: 77 kg

DRUGS (3)
  1. ETANERCEPT [Suspect]
     Dosage: 50 MG, WEEKLY
     Dates: start: 20110801, end: 20110801
  2. ETANERCEPT [Suspect]
     Dosage: 25 MG, 2X/WEEK
     Dates: start: 20110906
  3. ETANERCEPT [Suspect]
     Indication: RHEUMATOID ARTHRITIS
     Dosage: 50 MG, WEEKLY
     Dates: start: 20110801, end: 20110823

REACTIONS (2)
  - DRUG INEFFECTIVE [None]
  - INJECTION SITE HYPERSENSITIVITY [None]
